FAERS Safety Report 15336377 (Version 10)
Quarter: 2019Q1

REPORT INFORMATION
  Report Type: Spontaneous
  Country: US (occurrence: US)
  Receive Date: 20180830
  Receipt Date: 20190322
  Transmission Date: 20190417
  Serious: Yes (Other)
  Sender: FDA-Public Use
  Company Number: US-ACTELION-A-NJ2018-177616

PATIENT
  Age: 67 Year
  Sex: Female
  Weight: 79.37 kg

DRUGS (5)
  1. OPSUMIT [Suspect]
     Active Substance: MACITENTAN
     Indication: PULMONARY ARTERIAL HYPERTENSION
     Dosage: 10 MG, QD
     Route: 048
  2. UPTRAVI [Suspect]
     Active Substance: SELEXIPAG
     Indication: PULMONARY ARTERIAL HYPERTENSION
     Dosage: 1000 MCG, BID
     Route: 048
  3. UPTRAVI [Suspect]
     Active Substance: SELEXIPAG
     Dosage: 800 UNK, UNK
     Route: 048
  4. UPTRAVI [Suspect]
     Active Substance: SELEXIPAG
     Dosage: 200 MCG, BID
     Route: 048
     Dates: start: 201808
  5. ADEMPAS [Concomitant]
     Active Substance: RIOCIGUAT

REACTIONS (23)
  - Decreased appetite [Unknown]
  - Alopecia [Unknown]
  - Shoulder operation [Unknown]
  - Narcolepsy [Unknown]
  - Arthralgia [Unknown]
  - Fall [Unknown]
  - Contusion [Unknown]
  - Limb injury [Unknown]
  - Road traffic accident [Unknown]
  - Feeling abnormal [Unknown]
  - Myalgia [Unknown]
  - Fatigue [Unknown]
  - Dysphonia [Unknown]
  - Arthritis [Unknown]
  - Product dose omission [Unknown]
  - Headache [Unknown]
  - Unevaluable event [Unknown]
  - Influenza like illness [Unknown]
  - Peripheral swelling [Unknown]
  - Neck injury [Unknown]
  - Influenza [Unknown]
  - Sinusitis [Unknown]
  - Laryngitis [Unknown]

NARRATIVE: CASE EVENT DATE: 20180811
